FAERS Safety Report 17691021 (Version 1)
Quarter: 2020Q2

REPORT INFORMATION
  Report Type: Spontaneous
  Country: US (occurrence: US)
  Receive Date: 20200422
  Receipt Date: 20200422
  Transmission Date: 20200714
  Serious: No
  Sender: FDA-Public Use
  Company Number: US-MTPC-MTDA2020-0050497

PATIENT
  Sex: Male

DRUGS (1)
  1. RADICAVA [Suspect]
     Active Substance: EDARAVONE
     Indication: PRODUCT USED FOR UNKNOWN INDICATION
     Dosage: EVERY 6 MONTHS, DOSED FOR 2 WEEKS
     Route: 065
     Dates: start: 20190204, end: 201908

REACTIONS (1)
  - Inappropriate schedule of product administration [Unknown]
